FAERS Safety Report 9182590 (Version 1)
Quarter: 2013Q1

REPORT INFORMATION
  Report Type: Spontaneous
  Country: US (occurrence: US)
  Receive Date: 20130322
  Receipt Date: 20130322
  Transmission Date: 20140127
  Serious: No
  Sender: FDA-Public Use
  Company Number: US-BRISTOL-MYERS SQUIBB COMPANY-16837965

PATIENT
  Age: 62 Year
  Sex: Male
  Weight: 90.7 kg

DRUGS (1)
  1. ERBITUX [Suspect]
     Indication: OROPHARYNGEAL CANCER
     Dosage: TOTAL 6 TREATMENTS
     Dates: start: 20120706

REACTIONS (5)
  - Rash [Unknown]
  - Nausea [Unknown]
  - Oropharyngeal pain [Unknown]
  - Radiation skin injury [Unknown]
  - Dysphagia [Unknown]
